FAERS Safety Report 19237121 (Version 1)
Quarter: 2021Q2

REPORT INFORMATION
  Report Type: Spontaneous
  Country: US (occurrence: US)
  Receive Date: 20210509
  Receipt Date: 20210509
  Transmission Date: 20210717
  Serious: No
  Sender: FDA-Public Use
  Company Number: None

PATIENT
  Age: 44 Year
  Sex: Female
  Weight: 68.4 kg

DRUGS (6)
  1. ESTRADIOL TRANSDERMAL SYSTEM, USP (TWICE WEEKLY) [Suspect]
     Active Substance: ESTRADIOL
     Indication: HORMONE REPLACEMENT THERAPY
     Dosage: ?          QUANTITY:8 PATCH(ES);OTHER FREQUENCY:TWICE WEEKLY;?
     Route: 062
     Dates: start: 20210329
  2. BIOTIN [Concomitant]
     Active Substance: BIOTIN
  3. VIVISICAL [Concomitant]
  4. VITAMIN D [Concomitant]
     Active Substance: VITAMIN D NOS
  5. CARTEOLOL HYDROCHLORIDE EYEDROPS [Concomitant]
  6. MAGNESIUM SPRAY [Concomitant]

REACTIONS (2)
  - Manufacturing issue [None]
  - Application site erythema [None]

NARRATIVE: CASE EVENT DATE: 20210509
